FAERS Safety Report 9277306 (Version 1)
Quarter: 2013Q2

REPORT INFORMATION
  Report Type: Spontaneous
  Country: US (occurrence: None)
  Receive Date: 20130503
  Receipt Date: 20130503
  Transmission Date: 20140414
  Serious: No
  Sender: FDA-Public Use
  Company Number: None

PATIENT
  Age: 39 Year
  Sex: Male
  Weight: 92.99 kg

DRUGS (2)
  1. CLOMIPHENE CITRATE [Suspect]
  2. CLOMIPRAMINE [Suspect]

REACTIONS (2)
  - Medication error [None]
  - Product commingling [None]
